FAERS Safety Report 25498862 (Version 3)
Quarter: 2025Q3

REPORT INFORMATION
  Report Type: Report from Study
  Country: ZA (occurrence: ZA)
  Receive Date: 20250701
  Receipt Date: 20250818
  Transmission Date: 20251021
  Serious: Yes (Other)
  Sender: TEVA
  Company Number: ZA-TEVA-VS-3345762

PATIENT
  Age: 44 Year
  Sex: Female
  Weight: 76 kg

DRUGS (4)
  1. FINGOLIMOD [Suspect]
     Active Substance: FINGOLIMOD
     Indication: Multiple sclerosis
     Route: 048
     Dates: start: 20250210
  2. CARVEDILOL [Concomitant]
     Active Substance: CARVEDILOL
     Indication: Hypertension
     Dosage: DOSE + UNIT: 12,5MG
     Route: 048
     Dates: start: 2023
  3. Mixanval [Concomitant]
     Indication: Hypertension
     Dosage: DOSE + UNIT: 5/10MG
     Route: 048
     Dates: start: 2023
  4. CITALOPRAM [Concomitant]
     Active Substance: CITALOPRAM
     Indication: Depression
     Route: 048
     Dates: start: 2008

REACTIONS (4)
  - H1N1 influenza [Recovered/Resolved]
  - Pain in extremity [Unknown]
  - Malaise [Recovered/Resolved]
  - Asthenia [Recovered/Resolved]

NARRATIVE: CASE EVENT DATE: 20250101
